FAERS Safety Report 19000998 (Version 1)
Quarter: 2021Q1

REPORT INFORMATION
  Report Type: Spontaneous
  Country: US (occurrence: US)
  Receive Date: 20210311
  Receipt Date: 20210311
  Transmission Date: 20210420
  Serious: No
  Sender: FDA-Public Use
  Company Number: US-GLENMARK PHARMACEUTICALS-2020GMK046362

PATIENT

DRUGS (1)
  1. MUPIROCIN. [Suspect]
     Active Substance: MUPIROCIN
     Indication: LOCALISED INFECTION
     Dosage: UNK, BID
     Route: 061
     Dates: start: 2019, end: 20200101

REACTIONS (2)
  - Product quality issue [Unknown]
  - Drug ineffective [Unknown]
